FAERS Safety Report 8155765-2 (Version None)
Quarter: 2012Q1

REPORT INFORMATION
  Report Type: 
  Country: None (occurrence: None)
  Receive Date: 20120222
  Receipt Date: 20120217
  Transmission Date: 20120608
  Serious: Yes (Death)
  Sender: FDA-Public Use
  Company Number: US-AMGEN-USASP2011054546

PATIENT
  Sex: Male

DRUGS (4)
  1. NPLATE [Suspect]
  2. NPLATE [Suspect]
  3. NPLATE [Suspect]
     Indication: IDIOPATHIC THROMBOCYTOPENIC PURPURA
     Dosage: 750 MUG, UNK
     Route: 058
     Dates: start: 20110513, end: 20110915
  4. NPLATE [Suspect]

REACTIONS (1)
  - LYMPHOMA [None]
